FAERS Safety Report 5972016-5 (Version None)
Quarter: 2008Q4

REPORT INFORMATION
  Report Type: 
  Country: None (occurrence: None)
  Receive Date: 20081124
  Receipt Date: 20081112
  Transmission Date: 20090506
  Serious: Yes (Hospitalization)
  Sender: FDA-Public Use
  Company Number: FABR-1000509

PATIENT
  Age: 41 Year
  Sex: Female
  Weight: 62 kg

DRUGS (5)
  1. FABRAZYME [Suspect]
     Indication: FABRY'S DISEASE
     Dosage: 50 MG, Q2W, INTRAVENOUS
     Route: 042
     Dates: start: 20070201, end: 20080922
  2. ASPIRIN (ACETYLSALCYCLIC ACID) [Concomitant]
  3. AMLODIPINE [Concomitant]
  4. OLMESARTAN (OLMESARTAN) [Concomitant]
  5. ETIZOLAM (ETIZOLAM) [Concomitant]

REACTIONS (2)
  - CEREBRAL INFARCTION [None]
  - HEMIPARESIS [None]
